FAERS Safety Report 4951927-3 (Version None)
Quarter: 2006Q1

REPORT INFORMATION
  Report Type: 
  Country: None (occurrence: None)
  Receive Date: 20060322
  Receipt Date: 20060322
  Transmission Date: 20060701
  Serious: Yes (Other)
  Sender: FDA-Public Use
  Company Number: None

PATIENT
  Age: 46 Year
  Sex: Male
  Weight: 96 kg

DRUGS (3)
  1. ISOVUE-300 [Suspect]
     Indication: COMPUTERISED TOMOGRAM
     Dosage: 130 ML IV   2 ML/SEC
     Route: 042
  2. ORAL CONTRAST [Suspect]
     Dosage: NONE GIVEN
  3. ATORVASTATIN CALCIUM [Concomitant]

REACTIONS (6)
  - ERYTHEMA [None]
  - EYE PRURITUS [None]
  - HEART RATE DECREASED [None]
  - ORAL PRURITUS [None]
  - RASH MACULAR [None]
  - RESPIRATORY RATE INCREASED [None]
